FAERS Safety Report 18272851 (Version 1)
Quarter: 2020Q3

REPORT INFORMATION
  Report Type: Spontaneous
  Country: CA (occurrence: CA)
  Receive Date: 20200916
  Receipt Date: 20200916
  Transmission Date: 20201103
  Serious: Yes (Life-Threatening, Hospitalization)
  Sender: FDA-Public Use
  Company Number: CA-TEVA-2020-CA-1828029

PATIENT
  Age: 68 Year
  Sex: Male
  Weight: 70 kg

DRUGS (15)
  1. ADVAIR HFA [Concomitant]
     Active Substance: FLUTICASONE PROPIONATE\SALMETEROL XINAFOATE
  2. OMEPRAZOLE. [Concomitant]
     Active Substance: OMEPRAZOLE
  3. TAMSULOSIN [Concomitant]
     Active Substance: TAMSULOSIN
  4. VENTOLIN [Concomitant]
     Active Substance: ALBUTEROL SULFATE
  5. ASA [Concomitant]
     Active Substance: ASPIRIN
  6. TRIMETHOPRIM SULFAMETHOXAZOLE DS [Suspect]
     Active Substance: SULFAMETHOXAZOLE\TRIMETHOPRIM
     Indication: URINARY TRACT INFECTION
  7. AMLODIPINE [Concomitant]
     Active Substance: AMLODIPINE BESYLATE
  8. DUTASTERIDE. [Concomitant]
     Active Substance: DUTASTERIDE
  9. NITRO SPRAY [Concomitant]
     Active Substance: NITROGLYCERIN
  10. ATORVASTATIN [Concomitant]
     Active Substance: ATORVASTATIN
  11. TRIMETHOPRIM SULFAMETHOXAZOLE DS [Suspect]
     Active Substance: SULFAMETHOXAZOLE\TRIMETHOPRIM
     Dosage: 1 DOSAGE FORMS DAILY;
     Route: 048
  12. TYLENOL [Concomitant]
     Active Substance: ACETAMINOPHEN
  13. FOLIC ACID. [Concomitant]
     Active Substance: FOLIC ACID
  14. MACROBID [Concomitant]
     Active Substance: NITROFURANTOIN\NITROFURANTOIN MONOHYDRATE
  15. METOPROLOL. [Concomitant]
     Active Substance: METOPROLOL

REACTIONS (1)
  - Pancytopenia [Recovering/Resolving]
